FAERS Safety Report 6840052-2 (Version None)
Quarter: 2010Q3

REPORT INFORMATION
  Report Type: 
  Country: None (occurrence: None)
  Receive Date: 20100713
  Receipt Date: 20100713
  Transmission Date: 20110219
  Serious: No
  Sender: FDA-Public Use
  Company Number: None

PATIENT
  Sex: Female

DRUGS (1)
  1. LUCENTIS [Suspect]
     Dosage: 0.5 MG 2 MOS. INTRAOCULAR INJECTION
     Route: 031
     Dates: start: 20080506, end: 20100405

REACTIONS (1)
  - ENDOPHTHALMITIS [None]
